FAERS Safety Report 10787896 (Version 1)
Quarter: 2015Q1

REPORT INFORMATION
  Report Type: Spontaneous
  Country: US (occurrence: US)
  Receive Date: 20150212
  Receipt Date: 20150212
  Transmission Date: 20150721
  Serious: No
  Sender: FDA-Public Use
  Company Number: US-GLAXOSMITHKLINE-A0839979A

PATIENT

DRUGS (1)
  1. AVANDIA [Suspect]
     Active Substance: ROSIGLITAZONE MALEATE
     Indication: DIABETES MELLITUS
     Route: 048
     Dates: start: 20000925, end: 20090420

REACTIONS (7)
  - Chest pain [Unknown]
  - Cardiac failure congestive [Unknown]
  - Cataract [Unknown]
  - Dyspnoea [Unknown]
  - Vision blurred [Unknown]
  - Congestive cardiomyopathy [Unknown]
  - Fluid retention [Unknown]
